FAERS Safety Report 7660027-3 (Version None)
Quarter: 2011Q3

REPORT INFORMATION
  Report Type: 
  Country: None (occurrence: None)
  Receive Date: 20110805
  Receipt Date: 20110803
  Transmission Date: 20111222
  Serious: Yes (Other)
  Sender: FDA-Public Use
  Company Number: US-BAYER-2011-069215

PATIENT
  Sex: Female

DRUGS (3)
  1. DROSPIRENONE AND ETHINYL ESTRADIOL [Suspect]
     Dosage: UNK
     Dates: start: 20061101
  2. YASMIN [Suspect]
     Dosage: UNK
     Dates: start: 20061101
  3. YAZ [Suspect]
     Dosage: UNK
     Dates: start: 20061101

REACTIONS (6)
  - ANHEDONIA [None]
  - PAIN [None]
  - FEAR [None]
  - ANXIETY [None]
  - INJURY [None]
  - THROMBOSIS [None]
